FAERS Safety Report 20359256 (Version 1)
Quarter: 2022Q1

REPORT INFORMATION
  Report Type: Spontaneous
  Country: DE (occurrence: DE)
  Receive Date: 20220121
  Receipt Date: 20220121
  Transmission Date: 20220423
  Serious: Yes (Other)
  Sender: FDA-Public Use
  Company Number: DE-AMGEN-DEUSP2022008600

PATIENT
  Age: 47 Year
  Sex: Male

DRUGS (3)
  1. TRASTUZUMAB [Suspect]
     Active Substance: TRASTUZUMAB
     Indication: Malignant sweat gland neoplasm
     Dosage: UNK UNK, QWK
     Route: 065
     Dates: start: 20180430
  2. TRASTUZUMAB [Suspect]
     Active Substance: TRASTUZUMAB
     Indication: Off label use
  3. DOCETAXEL [Suspect]
     Active Substance: DOCETAXEL
     Indication: Malignant sweat gland neoplasm
     Dosage: UNK
     Route: 065
     Dates: start: 20181012

REACTIONS (4)
  - Metastases to lymph nodes [Unknown]
  - Malignant sweat gland neoplasm [Unknown]
  - Drug effective for unapproved indication [Unknown]
  - Off label use [Unknown]

NARRATIVE: CASE EVENT DATE: 20201101
